FAERS Safety Report 17115468 (Version 1)
Quarter: 2019Q4

REPORT INFORMATION
  Report Type: Spontaneous
  Country: US (occurrence: US)
  Receive Date: 20191204
  Receipt Date: 20191204
  Transmission Date: 20200122
  Serious: No
  Sender: FDA-Public Use
  Company Number: None

PATIENT
  Age: 64 Year
  Sex: Female
  Weight: 174 kg

DRUGS (4)
  1. FLUOROURACIL. [Concomitant]
     Active Substance: FLUOROURACIL
     Dates: start: 20191125, end: 20191125
  2. LEUCOVORIN. [Concomitant]
     Active Substance: LEUCOVORIN
     Dates: start: 20191125, end: 20191125
  3. OXALIPLATIN. [Concomitant]
     Active Substance: OXALIPLATIN
     Dates: start: 20191125, end: 20191125
  4. IRINOTECAN HYDROCHLORIDE. [Suspect]
     Active Substance: IRINOTECAN HYDROCHLORIDE
     Indication: ADENOCARCINOMA PANCREAS
     Dosage: ?          OTHER FREQUENCY:ONCE;?
     Route: 041
     Dates: start: 20191125, end: 20191125

REACTIONS (3)
  - Blepharospasm [None]
  - Muscle spasms [None]
  - Dysarthria [None]

NARRATIVE: CASE EVENT DATE: 20191125
